FAERS Safety Report 6527277-0 (Version None)
Quarter: 2009Q4

REPORT INFORMATION
  Report Type: 
  Country: None (occurrence: None)
  Receive Date: 20091230
  Receipt Date: 20091216
  Transmission Date: 20100525
  Serious: Yes (Life-Threatening)
  Sender: FDA-Public Use
  Company Number: 2009AL007918

PATIENT
  Age: 53 Year
  Sex: Male

DRUGS (5)
  1. CHLORHEXIDINE GLUCONATE [Suspect]
     Indication: INFECTION PROPHYLAXIS
     Dosage: X1; TOP
     Route: 061
     Dates: start: 20090924, end: 20090924
  2. PROPOFOL [Concomitant]
  3. THIOPENTAL SODIUM [Concomitant]
  4. REMIFENTANIL [Concomitant]
  5. CISATRACURIUM BESYLATE [Concomitant]

REACTIONS (2)
  - ANAPHYLACTIC REACTION [None]
  - DOCUMENTED HYPERSENSITIVITY TO ADMINISTERED DRUG [None]
